FAERS Safety Report 8584602-7 (Version None)
Quarter: 2012Q3

REPORT INFORMATION
  Report Type: 
  Country: None (occurrence: None)
  Receive Date: 20120802
  Receipt Date: 20120802
  Transmission Date: 20120928
  Serious: Yes (Hospitalization)
  Sender: FDA-Public Use
  Company Number: None

PATIENT
  Sex: Female
  Weight: 79.1 kg

DRUGS (2)
  1. TAXOL [Suspect]
     Dosage: 326 MG LAST ADMINISTERED ON 7/17/2012. CYCLE #5.
     Dates: start: 20120717
  2. CARBOPLATIN [Suspect]
     Dosage: 716 MG LAST ADMINISTERED ON 7/17/12. CYCLE #5
     Dates: start: 20120717

REACTIONS (1)
  - NEUTROPHIL COUNT DECREASED [None]
